FAERS Safety Report 11597196 (Version 1)
Quarter: 2015Q4

REPORT INFORMATION
  Report Type: Report from Study
  Country: JP (occurrence: JP)
  Receive Date: 20151006
  Receipt Date: 20151006
  Transmission Date: 20160304
  Serious: Yes (Death, Hospitalization, Other)
  Sender: FDA-Public Use
  Company Number: JP-SHIRE-JP201512436

PATIENT
  Age: 73 Year
  Sex: Male

DRUGS (11)
  1. EPOETIN BETA RECOMBINANT [Concomitant]
     Indication: PRODUCT USED FOR UNKNOWN INDICATION
     Dosage: 1500 IU, UNKNOWN
     Route: 042
  2. 405 (LANTHANUM CARBONATE) [Suspect]
     Active Substance: LANTHANUM CARBONATE
     Indication: HYPERPHOSPHATAEMIA
     Dosage: UNK, UNKNOWN
     Route: 048
     Dates: start: 201008
  3. RENAGEL [Concomitant]
     Active Substance: SEVELAMER HYDROCHLORIDE
     Indication: HYPERPHOSPHATAEMIA
     Dosage: 750 MG, UNKNOWN
     Route: 048
  4. OXAROL [Concomitant]
     Active Substance: MAXACALCITOL
     Dosage: 2.5 ?G, 1X/WEEK
     Route: 042
     Dates: start: 20101010, end: 20110109
  5. BASEN                              /01290601/ [Concomitant]
     Active Substance: VOGLIBOSE
     Indication: PRODUCT USED FOR UNKNOWN INDICATION
     Dosage: 0.6 MG, UNKNOWN
     Route: 048
  6. PRECIPITATED CALCIUM CARBONATE [Concomitant]
     Active Substance: CALCIUM CARBONATE
     Indication: HYPERPHOSPHATAEMIA
     Dosage: 3 G, UNKNOWN (PERDAY)
     Route: 048
  7. OXAROL [Concomitant]
     Active Substance: MAXACALCITOL
     Dosage: 5 ?G, OTHER (2 TIMES/WEEK)
     Route: 042
     Dates: start: 20101010, end: 20110109
  8. NORVASC [Concomitant]
     Active Substance: AMLODIPINE BESYLATE
     Indication: PRODUCT USED FOR UNKNOWN INDICATION
     Dosage: 10 MG, UNKNOWN
     Route: 048
  9. OXAROL [Concomitant]
     Active Substance: MAXACALCITOL
     Indication: PRODUCT USED FOR UNKNOWN INDICATION
     Dosage: 2.5 ?G, 1X/WEEK
     Route: 042
     Dates: start: 20110109
  10. BLOPRESS [Concomitant]
     Active Substance: CANDESARTAN CILEXETIL
     Indication: PRODUCT USED FOR UNKNOWN INDICATION
     Dosage: 12 MG, UNKNOWN
     Route: 048
  11. OXAROL [Concomitant]
     Active Substance: MAXACALCITOL
     Dosage: 5 ?G, OTHER (3 TIMES/WEEK)
     Route: 042
     Dates: start: 20100806, end: 20101009

REACTIONS (1)
  - Myocardial infarction [Fatal]

NARRATIVE: CASE EVENT DATE: 20130114
